FAERS Safety Report 8797628 (Version 3)
Quarter: 2012Q4

REPORT INFORMATION
  Report Type: 
  Country: DK (occurrence: DK)
  Receive Date: 20120920
  Receipt Date: 20121126
  Transmission Date: 20130627
  Serious: Yes (Death, Hospitalization, Other)
  Sender: FDA-Public Use
  Company Number: PHHY2012DK080721

PATIENT
  Age: 40 Year
  Sex: Female
  Weight: 65 kg

DRUGS (6)
  1. LEPONEX [Suspect]
     Indication: SCHIZOPHRENIA
     Dosage: 800 mg daily
     Route: 048
     Dates: start: 2004
  2. TRILEPTAL [Interacting]
     Indication: EPILEPSY
     Dosage: 1200 mg
     Dates: start: 2004
  3. NOZINAN [Concomitant]
     Indication: PSYCHOTIC DISORDER
     Dosage: 200-350 mg
  4. RIVOTRIL [Concomitant]
     Dosage: 4-5 mg
  5. SERTRALINE [Concomitant]
     Indication: DEPRESSION
     Dosage: 150 mg
  6. SERENASE [Concomitant]

REACTIONS (12)
  - Arrhythmia [Fatal]
  - Drug interaction [Fatal]
  - Disturbance in attention [Unknown]
  - Sight disability [Unknown]
  - Anxiety [Unknown]
  - Fatigue [Unknown]
  - Dizziness [Unknown]
  - Headache [Unknown]
  - Salivary hypersecretion [Recovered/Resolved]
  - Antipsychotic drug level increased [Recovering/Resolving]
  - Mental impairment [Unknown]
  - Electrocardiogram QRS complex prolonged [Unknown]
